FAERS Safety Report 6402611-0 (Version None)
Quarter: 2009Q4

REPORT INFORMATION
  Report Type: 
  Country: None (occurrence: None)
  Receive Date: 20091009
  Receipt Date: 20090930
  Transmission Date: 20100525
  Serious: Yes (Hospitalization, Disabling, Other)
  Sender: FDA-Public Use
  Company Number: ADR34052009

PATIENT
  Age: 77 Year
  Sex: Female

DRUGS (9)
  1. CIPROFLOXACIN [Suspect]
     Indication: URINARY TRACT INFECTION
  2. SIMVASTATIN [Suspect]
     Indication: HYPERCHOLESTEROLAEMIA
     Dosage: 40MG
     Route: 048
  3. ASPIRIN [Concomitant]
  4. CIMETIDINE [Concomitant]
  5. FUROSEMIDE [Concomitant]
  6. ISOSORBIDE [Concomitant]
  7. LEVOTHYROXINE SODIUM [Concomitant]
  8. NICORANDIL [Concomitant]
  9. PINDOLOL [Concomitant]

REACTIONS (2)
  - DRUG INTERACTION [None]
  - RHABDOMYOLYSIS [None]
